FAERS Safety Report 20379652 (Version 2)
Quarter: 2022Q1

REPORT INFORMATION
  Report Type: Report from Study
  Country: FR (occurrence: FR)
  Receive Date: 20220126
  Receipt Date: 20220128
  Transmission Date: 20220424
  Serious: Yes (Other)
  Sender: FDA-Public Use
  Company Number: FR-SERVIER-S22000526

PATIENT

DRUGS (8)
  1. PEGASPARGASE [Suspect]
     Active Substance: PEGASPARGASE
     Indication: Acute lymphocytic leukaemia
     Dosage: 29 IU, D15
     Route: 042
     Dates: start: 20211207, end: 20211207
  2. TN UNSPECIFIED [Concomitant]
     Indication: Acute lymphocytic leukaemia
     Dosage: 710 MG, D1 AND D29
     Route: 042
     Dates: start: 20211123
  3. TN UNSPECIFIED [Concomitant]
     Indication: Acute lymphocytic leukaemia
     Dosage: 40 MG, D1 TO D14, D29 TO D42
     Route: 048
     Dates: start: 20211123
  4. TN UNSPECIFIED [Concomitant]
     Indication: Acute lymphocytic leukaemia
     Dosage: 25 MG, D3, D16, D31, D46
     Route: 037
     Dates: start: 20211125
  5. TN UNSPECIFIED [Concomitant]
     Dosage: 53 MG, D3 TO D6,  D10 TO D13, D31 TO D34, D38
     Route: 042
     Dates: start: 20211125
  6. TN UNSPECIFIED [Concomitant]
     Indication: Acute lymphocytic leukaemia
     Dosage: 12.5 MG, D3, D16, D31, D46
     Route: 037
     Dates: start: 20211125
  7. TN UNSPECIFIED [Concomitant]
     Indication: Acute lymphocytic leukaemia
     Dosage: 10 MG, D3, D16, D31, D46
     Route: 037
     Dates: start: 20211125
  8. TN UNSPECIFIED [Concomitant]
     Indication: Acute lymphocytic leukaemia
     Dosage: 1 MG
     Route: 042

REACTIONS (1)
  - Anaphylactic reaction [Recovered/Resolved]

NARRATIVE: CASE EVENT DATE: 20211207
